FAERS Safety Report 6542540-5 (Version None)
Quarter: 2010Q1

REPORT INFORMATION
  Report Type: 
  Country: None (occurrence: None)
  Receive Date: 20100119
  Receipt Date: 20100111
  Transmission Date: 20100710
  Serious: Yes (Hospitalization, Other)
  Sender: FDA-Public Use
  Company Number: US-PFIZER INC-2009174861

PATIENT
  Sex: Female
  Weight: 53.07 kg

DRUGS (10)
  1. CHANTIX [Suspect]
     Dosage: 0.5 MG, 1X/DAY
     Route: 048
     Dates: start: 20090221, end: 20090301
  2. CHANTIX [Suspect]
  3. MORPHINE SULFATE [Suspect]
  4. PERCOCET [Suspect]
  5. OXYCONTIN [Concomitant]
     Dosage: UNK
  6. VICODIN [Concomitant]
     Dosage: UNK
  7. GABAPENTIN [Concomitant]
     Dosage: UNK
  8. COREG [Concomitant]
     Dosage: UNK
  9. LOVASTATIN [Concomitant]
     Dosage: UNK
  10. SEROQUEL [Concomitant]
     Dosage: UNK

REACTIONS (14)
  - ABDOMINAL DISCOMFORT [None]
  - ABNORMAL DREAMS [None]
  - ADNEXA UTERI PAIN [None]
  - DECREASED APPETITE [None]
  - FEELING ABNORMAL [None]
  - HYPERSENSITIVITY [None]
  - HYSTERECTOMY [None]
  - IRRITABILITY [None]
  - MOOD SWINGS [None]
  - NAUSEA [None]
  - NERVOUSNESS [None]
  - SKIN EXFOLIATION [None]
  - STRESS [None]
  - TOOTHACHE [None]
